FAERS Safety Report 21851368 (Version 1)
Quarter: 2023Q1

REPORT INFORMATION
  Report Type: Spontaneous
  Country: ES (occurrence: ES)
  Receive Date: 20230112
  Receipt Date: 20230112
  Transmission Date: 20230417
  Serious: Yes (Life-Threatening, Hospitalization)
  Sender: FDA-Public Use
  Company Number: ES-AEMPS-1304969

PATIENT
  Age: 91 Year
  Sex: Female
  Weight: 50 kg

DRUGS (1)
  1. ALLOPURINOL [Suspect]
     Active Substance: ALLOPURINOL
     Indication: Hyperuricaemia
     Dosage: 100 MILLIGRAM, QD, 1-0-0
     Route: 048
     Dates: start: 20220304, end: 20220411

REACTIONS (4)
  - Chronic kidney disease [Recovered/Resolved]
  - Hypertransaminasaemia [Recovered/Resolved]
  - Condition aggravated [Recovered/Resolved]
  - Drug reaction with eosinophilia and systemic symptoms [Recovered/Resolved]

NARRATIVE: CASE EVENT DATE: 20220411
